FAERS Safety Report 12632938 (Version 2)
Quarter: 2016Q3

REPORT INFORMATION
  Report Type: Spontaneous
  Country: US (occurrence: US)
  Receive Date: 20160808
  Receipt Date: 20160808
  Transmission Date: 20161109
  Serious: No
  Sender: FDA-Public Use
  Company Number: US-BEH-2016057681

PATIENT
  Sex: Female
  Weight: 72 kg

DRUGS (18)
  1. TIZANIDINE. [Concomitant]
     Active Substance: TIZANIDINE
  2. LIDOCAINE. [Concomitant]
     Active Substance: LIDOCAINE
  3. ZOLPIDEM [Concomitant]
     Active Substance: ZOLPIDEM\ZOLPIDEM TARTRATE
  4. EPIPEN [Concomitant]
     Active Substance: EPINEPHRINE
  5. CENTRUM SILVER [Concomitant]
     Active Substance: MINERALS\VITAMINS
  6. COENZYME Q10 [Concomitant]
     Active Substance: UBIDECARENONE
  7. DIPHENHYDRAMINE. [Concomitant]
     Active Substance: DIPHENHYDRAMINE
  8. XANAX [Concomitant]
     Active Substance: ALPRAZOLAM
  9. PRAVASTATIN. [Concomitant]
     Active Substance: PRAVASTATIN
  10. HIZENTRA [Suspect]
     Active Substance: HUMAN IMMUNOGLOBULIN G
     Indication: IMMUNODEFICIENCY COMMON VARIABLE
     Route: 058
  11. METOCLOPRAMIDE. [Concomitant]
     Active Substance: METOCLOPRAMIDE
  12. SERTRALINE [Concomitant]
     Active Substance: SERTRALINE HYDROCHLORIDE
  13. MACROBID [Concomitant]
     Active Substance: NITROFURANTOIN\NITROFURANTOIN MONOHYDRATE
  14. VICODIN [Concomitant]
     Active Substance: ACETAMINOPHEN\HYDROCODONE BITARTRATE
  15. VALTREX [Concomitant]
     Active Substance: VALACYCLOVIR HYDROCHLORIDE
  16. BUPROPION. [Concomitant]
     Active Substance: BUPROPION
  17. DOCUSATE CAL [Concomitant]
  18. VITAMIN D [Concomitant]
     Active Substance: CHOLECALCIFEROL

REACTIONS (1)
  - Urinary tract infection [Unknown]
